FAERS Safety Report 7395643-X (Version None)
Quarter: 2011Q2

REPORT INFORMATION
  Report Type: 
  Country: None (occurrence: None)
  Receive Date: 20110405
  Receipt Date: 20110330
  Transmission Date: 20111010
  Serious: Yes (Life-Threatening, Hospitalization, Other)
  Sender: FDA-Public Use
  Company Number: DE-PFIZER INC-2011059612

PATIENT
  Age: 91 Year
  Sex: Female
  Weight: 51.5 kg

DRUGS (1)
  1. LYRICA [Suspect]
     Indication: POLYNEUROPATHY
     Dosage: 75 MG, 2X/DAY
     Route: 048
     Dates: start: 20050101, end: 20110101

REACTIONS (1)
  - ATRIOVENTRICULAR BLOCK SECOND DEGREE [None]
